FAERS Safety Report 6266797-3 (Version None)
Quarter: 2009Q3

REPORT INFORMATION
  Report Type: 
  Country: None (occurrence: None)
  Receive Date: 20090714
  Receipt Date: 20090622
  Transmission Date: 20100115
  Serious: Yes (Hospitalization)
  Sender: FDA-Public Use
  Company Number: JP-JNJFOC-20090604911

PATIENT
  Sex: Male
  Weight: 58 kg

DRUGS (24)
  1. FENTANYL [Suspect]
     Route: 062
  2. FENTANYL [Suspect]
     Route: 062
  3. FENTANYL [Suspect]
     Indication: PAIN
     Route: 062
  4. ADALAT CC [Concomitant]
     Indication: HYPERTENSION
     Route: 048
  5. BLOPRESS [Concomitant]
     Indication: HYPERTENSION
     Route: 048
  6. TAKEPRON [Concomitant]
     Indication: GASTRIC ULCER
     Route: 048
  7. URIEF [Concomitant]
     Indication: BENIGN PROSTATIC HYPERPLASIA
     Route: 048
  8. POLYFUL [Concomitant]
     Indication: IRRITABLE BOWEL SYNDROME
     Dosage: FINE GRAIN
     Route: 048
  9. TETRAMIDE [Concomitant]
     Indication: SOMATOFORM DISORDER
     Route: 048
  10. PAXIL [Concomitant]
     Indication: SOMATOFORM DISORDER
     Route: 048
  11. DEPAS [Concomitant]
     Indication: SOMATOFORM DISORDER
     Dosage: FINE GRAIN
     Route: 048
  12. PALGIN (ETIZOLAM) [Concomitant]
     Indication: SOMATOFORM DISORDER
     Route: 048
  13. HANGE-KOBUKU-TO [Concomitant]
     Indication: INSOMNIA
     Dosage: GRANULATED POWDER
     Route: 048
  14. RIKKUNSHI-TO [Concomitant]
     Indication: DECREASED APPETITE
     Dosage: GRANULATED POWDER
     Route: 048
  15. PYRINAZIN [Concomitant]
     Indication: PYREXIA
     Dosage: GRANULATED POWDER
     Route: 048
  16. NOVAMIN [Concomitant]
     Indication: PROPHYLAXIS OF NAUSEA AND VOMITING
     Route: 048
  17. LAXOBERON [Concomitant]
     Indication: CONSTIPATION
     Dosage: LIQUID MEDICINE FOR INTERNAL USE (P.R.N) AS NEEDED
     Route: 048
  18. MORPHINE HYDROCHLORIDE [Concomitant]
     Indication: DRUG USE FOR UNKNOWN INDICATION
     Route: 048
  19. KENEI G (GLYCERIN) [Concomitant]
     Route: 054
  20. KENEI G (GLYCERIN) [Concomitant]
     Indication: CONSTIPATION
     Route: 054
  21. NEUROTROPIN [Concomitant]
     Indication: ABDOMINAL PAIN
     Route: 041
  22. PRINK (ALPROSTADIL) [Concomitant]
     Indication: ABDOMINAL PAIN
     Route: 041
  23. VEEN-F [Concomitant]
     Indication: FLUID REPLACEMENT
     Route: 041
  24. VEEN-D [Concomitant]
     Indication: FLUID REPLACEMENT
     Route: 041

REACTIONS (1)
  - DYSURIA [None]
